FAERS Safety Report 22123033 (Version 2)
Quarter: 2023Q2

REPORT INFORMATION
  Report Type: Spontaneous
  Country: BE (occurrence: BE)
  Receive Date: 20230322
  Receipt Date: 20230406
  Transmission Date: 20230721
  Serious: Yes (Other)
  Sender: FDA-Public Use
  Company Number: BE-BoehringerIngelheim-2023-BI-225266

PATIENT
  Age: 48 Year
  Sex: Male

DRUGS (7)
  1. PRAMIPEXOLE [Suspect]
     Active Substance: PRAMIPEXOLE
     Indication: Parkinson^s disease
  2. SAFINAMIDE [Concomitant]
     Active Substance: SAFINAMIDE
     Indication: Product used for unknown indication
  3. Levodopa + Bensarazide [Concomitant]
     Indication: Product used for unknown indication
     Dosage: DISPERSIBLE; 100 MG AND 125 MG BOTH ONCE DAY
  4. Levodopa + Bensarazide [Concomitant]
  5. Levodopa + Carbidopa + Entacapon [Concomitant]
     Indication: Product used for unknown indication
     Dosage: 150/37.5/200 MG
  6. Levodopa + Carbidopa + Entacapon [Concomitant]
     Dosage: 200/50/200 MG
  7. Levodopa + Carbidopa + Entacapon [Concomitant]
     Dosage: 50/12, 5/200 MG

REACTIONS (4)
  - Chorea [Recovering/Resolving]
  - Quality of life decreased [Unknown]
  - Gait disturbance [Recovering/Resolving]
  - Impulse-control disorder [Unknown]
